FAERS Safety Report 9758749 (Version 2)
Quarter: 2014Q2

REPORT INFORMATION
  Report Type: Spontaneous
  Country: US (occurrence: None)
  Receive Date: 20131216
  Receipt Date: 20140514
  Transmission Date: 20141212
  Serious: Yes (Hospitalization, Other)
  Sender: FDA-Public Use
  Company Number: 070317

PATIENT
  Age: 42 Year
  Sex: Male
  Weight: 72.5 kg

DRUGS (5)
  1. CIMZIA [Suspect]
     Indication: CROHN^S DISEASE
     Dosage: (400 MG 1X/4 WEEKS)
     Dates: start: 20100830
  2. LOPERAMIDE [Concomitant]
  3. WELLBUTRIN XL [Concomitant]
  4. VENTOLIN [Concomitant]
  5. DEXLANSOPRAZOLE [Concomitant]

REACTIONS (1)
  - Intestinal obstruction [None]
